FAERS Safety Report 24352201 (Version 2)
Quarter: 2024Q3

REPORT INFORMATION
  Report Type: Spontaneous
  Country: US (occurrence: US)
  Receive Date: 20240923
  Receipt Date: 20240927
  Transmission Date: 20241017
  Serious: No
  Sender: BAYER
  Company Number: US-BAYER-2024A134727

PATIENT
  Sex: Female

DRUGS (1)
  1. ASTEPRO [Suspect]
     Active Substance: AZELASTINE HYDROCHLORIDE
     Indication: Conductive deafness
     Dosage: FIRST, 2 SPRAYS EVERY 24 HOURS. THEN 1 SPRAY IN THE MORNING AND 1 SPRAY AT NIGHT
     Dates: start: 2022

REACTIONS (3)
  - Bromhidrosis [Recovered/Resolved]
  - Product use in unapproved indication [Unknown]
  - Incorrect route of product administration [None]
